FAERS Safety Report 8379543-4 (Version None)
Quarter: 2012Q1

REPORT INFORMATION
  Report Type: 
  Country: None (occurrence: None)
  Receive Date: 20120323
  Receipt Date: 20110406
  Transmission Date: 20120608
  Serious: Yes (Other)
  Sender: FDA-Public Use
  Company Number: 163-21880-11040827

PATIENT
  Sex: Male

DRUGS (5)
  1. REVLIMID [Suspect]
     Indication: MULTIPLE MYELOMA
     Dosage: 15 MG, 1 IN 1 D, PO, 10 MG, DAILY FOR 21 DAYS, PO
     Route: 048
     Dates: start: 20110301
  2. REVLIMID [Suspect]
     Indication: MULTIPLE MYELOMA
     Dosage: 15 MG, 1 IN 1 D, PO, 10 MG, DAILY FOR 21 DAYS, PO
     Route: 048
     Dates: start: 20100422
  3. TYLENOL (PARACETAMOL)(UNKNOWN) [Concomitant]
  4. COUMADIN [Concomitant]
  5. ACYCLOVIR(ACICLOVIR)(UNKNOWN) [Concomitant]

REACTIONS (1)
  - PLATELET COUNT DECREASED [None]
